FAERS Safety Report 16207416 (Version 2)
Quarter: 2022Q2

REPORT INFORMATION
  Report Type: Spontaneous
  Country: US (occurrence: US)
  Receive Date: 20190417
  Receipt Date: 20220614
  Transmission Date: 20220721
  Serious: Yes (Life-Threatening, Hospitalization, Other)
  Sender: FDA-Public Use
  Company Number: US-MLMSERVICE-20190403-1691867-1

PATIENT
  Age: 80 Year
  Sex: Male

DRUGS (1)
  1. DILTIAZEM HYDROCHLORIDE [Suspect]
     Active Substance: DILTIAZEM HYDROCHLORIDE
     Indication: Hypertension
     Route: 065

REACTIONS (8)
  - Toxicity to various agents [Recovering/Resolving]
  - Atrioventricular block first degree [Not Recovered/Not Resolved]
  - Atrioventricular block complete [Recovered/Resolved]
  - Bradycardia [Unknown]
  - Atrioventricular block complete [Unknown]
  - Chest discomfort [Unknown]
  - Bradypnoea [Unknown]
  - Atrioventricular block [Unknown]
